FAERS Safety Report 13598183 (Version 2)
Quarter: 2017Q2

REPORT INFORMATION
  Report Type: Spontaneous
  Country: GB (occurrence: GB)
  Receive Date: 20170531
  Receipt Date: 20170608
  Transmission Date: 20170830
  Serious: Yes (Other)
  Sender: FDA-Public Use
  Company Number: GB-CONCORDIA PHARMACEUTICALS INC.-GSH201705-002836

PATIENT
  Age: 57 Year
  Sex: Female

DRUGS (3)
  1. ANAKINRA [Concomitant]
     Active Substance: ANAKINRA
  2. PREDNISOLONE. [Suspect]
     Active Substance: PREDNISOLONE
     Indication: PYODERMA GANGRENOSUM
     Route: 048
  3. PREDNISOLONE. [Suspect]
     Active Substance: PREDNISOLONE

REACTIONS (2)
  - Condition aggravated [Recovering/Resolving]
  - Diabetes mellitus [Recovered/Resolved]
